FAERS Safety Report 5131071-5 (Version None)
Quarter: 2006Q3

REPORT INFORMATION
  Report Type: 
  Country: None (occurrence: None)
  Receive Date: 20060829
  Receipt Date: 20060614
  Transmission Date: 20061208
  Serious: No
  Sender: FDA-Public Use
  Company Number: S06-USA-02284-01

PATIENT
  Age: 51 Year
  Sex: Female
  Weight: 58.514 kg

DRUGS (2)
  1. CAMPRAL [Suspect]
     Indication: ARTHRALGIA
     Dosage: 666 MG TID PO
     Route: 048
     Dates: start: 20060517
  2. SUPPLEMENTS (NOS) [Concomitant]

REACTIONS (4)
  - ANOREXIA [None]
  - ANXIETY [None]
  - INSOMNIA [None]
  - WEIGHT DECREASED [None]
